FAERS Safety Report 8081109-0 (Version None)
Quarter: 2012Q1

REPORT INFORMATION
  Report Type: 
  Country: None (occurrence: None)
  Receive Date: 20120130
  Receipt Date: 20120125
  Transmission Date: 20120608
  Serious: Yes (Hospitalization)
  Sender: FDA-Public Use
  Company Number: US-GLAXOSMITHKLINE-A0850544A

PATIENT
  Age: 65 Year
  Sex: Male
  Weight: 100.9 kg

DRUGS (3)
  1. TRAMADOL HCL [Concomitant]
  2. LIPITOR [Concomitant]
  3. AVANDIA [Suspect]
     Indication: TYPE 2 DIABETES MELLITUS
     Dosage: 8MG PER DAY
     Route: 048
     Dates: end: 20070101

REACTIONS (4)
  - MYOCARDIAL INFARCTION [None]
  - SEXUAL DYSFUNCTION [None]
  - CATARACT [None]
  - CORONARY ARTERY OCCLUSION [None]
